FAERS Safety Report 5760084-5 (Version None)
Quarter: 2008Q2

REPORT INFORMATION
  Report Type: 
  Country: None (occurrence: None)
  Receive Date: 20080605
  Receipt Date: 20080530
  Transmission Date: 20081010
  Serious: Yes (Hospitalization)
  Sender: FDA-Public Use
  Company Number: US-AVENTIS-200813355US

PATIENT
  Sex: Female

DRUGS (3)
  1. APIDRA [Suspect]
     Indication: TYPE 1 DIABETES MELLITUS
     Dosage: DOSE: VIA PUMP
  2. LEVOXYL [Concomitant]
     Dosage: DOSE: UNK
  3. AVIANE-21 [Concomitant]
     Dosage: DOSE: UNK

REACTIONS (5)
  - BLOOD GLUCOSE INCREASED [None]
  - DEHYDRATION [None]
  - HYPERGLYCAEMIA [None]
  - KETOACIDOSIS [None]
  - VOMITING [None]
